FAERS Safety Report 6508688-6 (Version None)
Quarter: 2009Q4

REPORT INFORMATION
  Report Type: 
  Country: None (occurrence: None)
  Receive Date: 20091221
  Receipt Date: 20081229
  Transmission Date: 20100525
  Serious: No
  Sender: FDA-Public Use
  Company Number: US-ASTRAZENECA-2008UW28801

PATIENT
  Age: 64 Year
  Sex: Female
  Weight: 63.5 kg

DRUGS (11)
  1. CRESTOR [Suspect]
     Route: 048
     Dates: start: 20081215
  2. SYNTHROID [Concomitant]
  3. DIOVAN [Concomitant]
  4. METORPHORMAN HCL [Concomitant]
  5. VITAMIN [Concomitant]
  6. ASPIRIN [Concomitant]
     Dosage: 81 MG
  7. VITAMIN E [Concomitant]
  8. OCCUVITE [Concomitant]
  9. ASCORBIC ACID [Concomitant]
  10. CALCIUM WITH D [Concomitant]
  11. SELENIUM [Concomitant]

REACTIONS (1)
  - DRY EYE [None]
